FAERS Safety Report 8518261-6 (Version None)
Quarter: 2012Q3

REPORT INFORMATION
  Report Type: 
  Country: None (occurrence: None)
  Receive Date: 20120718
  Receipt Date: 20111209
  Transmission Date: 20120928
  Serious: No
  Sender: FDA-Public Use
  Company Number: US-BRISTOL-MYERS SQUIBB COMPANY-16282667

PATIENT
  Age: 7 Year
  Sex: Male

DRUGS (6)
  1. ASPIRIN [Concomitant]
  2. FUROSEMIDE [Concomitant]
  3. AMOXICILLIN [Concomitant]
  4. COUMADIN [Suspect]
     Dates: end: 20110101
  5. ALDACTONE [Concomitant]
  6. METOLAZONE [Concomitant]

REACTIONS (1)
  - INTERNATIONAL NORMALISED RATIO FLUCTUATION [None]
